FAERS Safety Report 8489607-2 (Version None)
Quarter: 2012Q3

REPORT INFORMATION
  Report Type: 
  Country: None (occurrence: None)
  Receive Date: 20120705
  Receipt Date: 20120629
  Transmission Date: 20120928
  Serious: No
  Sender: FDA-Public Use
  Company Number: US-PFIZER INC-2012124220

PATIENT
  Sex: Female
  Weight: 58.957 kg

DRUGS (1)
  1. LYRICA [Suspect]
     Indication: INTERVERTEBRAL DISC PROTRUSION
     Dosage: 75 MG, UNK
     Route: 048
     Dates: start: 20120522

REACTIONS (4)
  - GASTROENTERITIS [None]
  - HYPERHIDROSIS [None]
  - BLADDER PAIN [None]
  - ABDOMINAL PAIN UPPER [None]
